FAERS Safety Report 9455826 (Version 1)
Quarter: 2013Q3

REPORT INFORMATION
  Report Type: Spontaneous
  Country: BR (occurrence: BR)
  Receive Date: 20130813
  Receipt Date: 20130813
  Transmission Date: 20140515
  Serious: Yes (Other)
  Sender: FDA-Public Use
  Company Number: BR-BAYER-2013-095707

PATIENT
  Age: 43 Year
  Sex: Male
  Weight: 74 kg

DRUGS (3)
  1. GADOVIST [Suspect]
     Indication: NUCLEAR MAGNETIC RESONANCE IMAGING
     Dosage: 7.5 ML, ONCE
     Route: 042
     Dates: start: 20130723, end: 20130723
  2. GADOVIST [Suspect]
     Indication: DEAFNESS
  3. PURAN T4 [Concomitant]
     Indication: HYPOTHYROIDISM

REACTIONS (4)
  - Hypertensive crisis [Recovered/Resolved]
  - Blood pressure increased [Recovered/Resolved]
  - Tachycardia [Recovered/Resolved]
  - Dyspnoea [Recovered/Resolved]
